FAERS Safety Report 6921582-1 (Version None)
Quarter: 2010Q3

REPORT INFORMATION
  Report Type: 
  Country: None (occurrence: None)
  Receive Date: 20100805
  Receipt Date: 20100520
  Transmission Date: 20110219
  Serious: No
  Sender: FDA-Public Use
  Company Number: US-002123

PATIENT
  Sex: Male

DRUGS (1)
  1. DEGARELIX 240 MG [Suspect]
     Indication: PROSTATE CANCER
     Dosage: (240 MG TOTAL SUBCUTANEOUS)
     Route: 058

REACTIONS (1)
  - RESPIRATORY DISORDER [None]
